FAERS Safety Report 4873774-3 (Version None)
Quarter: 2006Q1

REPORT INFORMATION
  Report Type: 
  Country: None (occurrence: None)
  Receive Date: 20060106
  Receipt Date: 20050824
  Transmission Date: 20060701
  Serious: Yes (Hospitalization, Other)
  Sender: FDA-Public Use
  Company Number: 200516319US

PATIENT
  Sex: Male
  Weight: 97.7 kg

DRUGS (2)
  1. KETEK [Suspect]
     Indication: COUGH
     Dosage: DOSE: UNKNOWN
     Route: 048
     Dates: start: 20050819, end: 20050823
  2. KETEK [Suspect]
     Dosage: DOSE: UNKNOWN
     Route: 048
     Dates: start: 20050819, end: 20050823

REACTIONS (16)
  - ALANINE AMINOTRANSFERASE INCREASED [None]
  - ASPARTATE AMINOTRANSFERASE INCREASED [None]
  - BLOOD ALKALINE PHOSPHATASE INCREASED [None]
  - BLOOD CREATINE PHOSPHOKINASE INCREASED [None]
  - BLOOD CREATINE PHOSPHOKINASE MB INCREASED [None]
  - BRONCHITIS [None]
  - CHEST PAIN [None]
  - DYSPNOEA [None]
  - FATIGUE [None]
  - FEELING COLD [None]
  - HEPATIC ENZYME INCREASED [None]
  - HOT FLUSH [None]
  - NAUSEA [None]
  - PYREXIA [None]
  - RED BLOOD CELL SEDIMENTATION RATE INCREASED [None]
  - RHABDOMYOLYSIS [None]
